FAERS Safety Report 4724022-6 (Version None)
Quarter: 2005Q3

REPORT INFORMATION
  Report Type: 
  Country: None (occurrence: None)
  Receive Date: 20050722
  Receipt Date: 20050707
  Transmission Date: 20060218
  Serious: Yes (Other)
  Sender: FDA-Public Use
  Company Number: 2004-0007666

PATIENT
  Age: 1 Day
  Sex: Female
  Weight: 3.1294 kg

DRUGS (5)
  1. TENOFOVIR DISOPROXIL FUMARATE (TENOFOVIR DISOPROXIL FUMARATE) [Suspect]
     Indication: PROPHYLAXIS AGAINST HIV INFECTION
     Dosage: 600 MG, ONCE
     Dates: start: 20040924, end: 20040924
  2. AZT [Suspect]
     Indication: PROPHYLAXIS AGAINST HIV INFECTION
     Dosage: ONCE
     Dates: start: 20040924, end: 20040924
  3. ZIAGEN [Concomitant]
  4. VIRAMUNE [Concomitant]
  5. COMBIVIR [Concomitant]

REACTIONS (15)
  - ALANINE AMINOTRANSFERASE INCREASED [None]
  - ANAEMIA MACROCYTIC [None]
  - ASPARTATE AMINOTRANSFERASE INCREASED [None]
  - BLOOD AMYLASE INCREASED [None]
  - BLOOD CREATINE PHOSPHOKINASE INCREASED [None]
  - BLOOD GLUCOSE DECREASED [None]
  - BLOOD POTASSIUM INCREASED [None]
  - BLOOD URIC ACID INCREASED [None]
  - CAESAREAN SECTION [None]
  - DRUG EXPOSURE DURING PREGNANCY [None]
  - HAEMOGLOBIN DECREASED [None]
  - MYOPATHY [None]
  - NEONATAL DISORDER [None]
  - NEUROMYOPATHY [None]
  - NEUTROPHIL COUNT DECREASED [None]
